FAERS Safety Report 10338701 (Version 1)
Quarter: 2014Q3

REPORT INFORMATION
  Report Type: Spontaneous
  Country: US (occurrence: None)
  Receive Date: 20140722
  Receipt Date: 20140722
  Transmission Date: 20150326
  Serious: Yes (Hospitalization)
  Sender: FDA-Public Use
  Company Number: None

PATIENT
  Age: 69 Year
  Sex: Male
  Weight: 86 kg

DRUGS (3)
  1. CYTARABINE. [Suspect]
     Active Substance: CYTARABINE
  2. IDARUBICIN [Suspect]
     Active Substance: IDARUBICIN
  3. PRAVASTATIN SODIUM. [Suspect]
     Active Substance: PRAVASTATIN SODIUM

REACTIONS (16)
  - Acute respiratory distress syndrome [None]
  - Continuous haemodiafiltration [None]
  - Cholecystitis [None]
  - Septic shock [None]
  - Acidosis [None]
  - Fluid overload [None]
  - Coagulopathy [None]
  - Neutropenia [None]
  - Multi-organ failure [None]
  - Streptococcal sepsis [None]
  - Renal failure acute [None]
  - Respiratory failure [None]
  - Cholecystitis infective [None]
  - Intestinal dilatation [None]
  - Klebsiella sepsis [None]
  - General physical health deterioration [None]

NARRATIVE: CASE EVENT DATE: 20140713
